FAERS Safety Report 12948962 (Version 1)
Quarter: 2016Q4

REPORT INFORMATION
  Report Type: Spontaneous
  Country: FR (occurrence: FR)
  Receive Date: 20161116
  Receipt Date: 20161116
  Transmission Date: 20170207
  Serious: Yes (Congenital Anomaly)
  Sender: FDA-Public Use
  Company Number: FR-ABBVIE-16P-056-1783782-00

PATIENT
  Sex: Male

DRUGS (1)
  1. SODIUM VALPROATE/VALPROIC ACID [Suspect]
     Active Substance: VALPROATE SODIUM
     Indication: MATERNAL EXPOSURE TIMING UNSPECIFIED
     Route: 064

REACTIONS (8)
  - Inguinal hernia [Unknown]
  - Nephrotic syndrome [Unknown]
  - Cardiac murmur [Unknown]
  - Arteriovenous fistula [Unknown]
  - Ventricular septal defect [Recovered/Resolved with Sequelae]
  - Pulmonary valve stenosis [Unknown]
  - Foetal exposure during pregnancy [Unknown]
  - Scoliosis [Unknown]
